FAERS Safety Report 10414910 (Version 2)
Quarter: 2014Q4

REPORT INFORMATION
  Report Type: Spontaneous
  Country: US (occurrence: None)
  Receive Date: 20140604
  Receipt Date: 20141010
  Transmission Date: 20150528
  Serious: No
  Sender: FDA-Public Use
  Company Number: 163-POMAL-14033958

PATIENT
  Age: 83 Year
  Sex: Female
  Weight: 48.5 kg

DRUGS (15)
  1. ERGOCALCIFEROL. [Concomitant]
     Active Substance: ERGOCALCIFEROL
  2. MAGNESIUM OXIDE. [Concomitant]
     Active Substance: MAGNESIUM OXIDE
  3. VELCADE [Concomitant]
     Active Substance: BORTEZOMIB
  4. POMALYST [Suspect]
     Active Substance: POMALIDOMIDE
     Indication: PLASMA CELL MYELOMA
     Dosage: 1 IN 1 D
     Route: 048
     Dates: start: 20130321
  5. GAS RELIEF (DIMETICONE, ACTIVATED) [Concomitant]
  6. VITAMIN D (ERGOCALCIFEROL) [Concomitant]
     Active Substance: ERGOCALCIFEROL
  7. SENNA LAX (SENNOSIDE A+B) [Concomitant]
  8. DEXAMETHASONE. [Concomitant]
     Active Substance: DEXAMETHASONE
  9. POTASSIUM CHLORIDE. [Concomitant]
     Active Substance: POTASSIUM CHLORIDE
  10. PAIN + FEVER (PARACETAMOL) [Concomitant]
  11. TYLENOL [Concomitant]
     Active Substance: ACETAMINOPHEN
  12. VITAMIN D3 [Concomitant]
     Active Substance: CHOLECALCIFEROL
  13. FLECAINIDE ACETATE. [Concomitant]
     Active Substance: FLECAINIDE ACETATE
  14. CYCLOPHOSPHAMIDE. [Concomitant]
     Active Substance: CYCLOPHOSPHAMIDE
  15. VITAMIN D2 (ERGOCALCIFEROL) [Concomitant]

REACTIONS (7)
  - Rash [None]
  - Constipation [None]
  - Body height decreased [None]
  - Hypertension [None]
  - Weight increased [None]
  - Diarrhoea [None]
  - Abdominal discomfort [None]

NARRATIVE: CASE EVENT DATE: 201303
